FAERS Safety Report 12950409 (Version 7)
Quarter: 2017Q4

REPORT INFORMATION
  Report Type: Report from Study
  Country: US (occurrence: US)
  Receive Date: 20161116
  Receipt Date: 20171120
  Transmission Date: 20180320
  Serious: Yes (Hospitalization, Other)
  Sender: FDA-Public Use
  Company Number: US-ACTELION-A-NJ2016-145469

PATIENT
  Age: 62 Year
  Sex: Female
  Weight: 64.4 kg

DRUGS (11)
  1. MIDODRINE [Concomitant]
     Active Substance: MIDODRINE
     Dosage: UNK
     Dates: start: 20160604
  2. ALBUTEROL HFA [Concomitant]
     Active Substance: ALBUTEROL SULFATE
     Dosage: UNK
     Dates: start: 20140919
  3. TRAMADOL. [Concomitant]
     Active Substance: TRAMADOL
     Dosage: UNK
     Dates: start: 20170620
  4. UPTRAVI [Suspect]
     Active Substance: SELEXIPAG
     Indication: PORTOPULMONARY HYPERTENSION
     Dosage: 1200 MCG, BID
     Route: 048
     Dates: start: 20160729, end: 20170911
  5. ASA [Concomitant]
     Active Substance: ASPIRIN
     Dosage: UNK
     Dates: start: 2016
  6. FLUCONAZOLE. [Concomitant]
     Active Substance: FLUCONAZOLE
     Dosage: UNK
     Dates: start: 20151112
  7. OPSUMIT [Suspect]
     Active Substance: MACITENTAN
     Indication: PORTOPULMONARY HYPERTENSION
     Dosage: 10 MG, QD
     Route: 048
     Dates: start: 20150717, end: 20170919
  8. ADCIRCA [Concomitant]
     Active Substance: TADALAFIL
     Dosage: UNK
     Dates: start: 201408
  9. DIGOXIN. [Concomitant]
     Active Substance: DIGOXIN
     Dosage: UNK
     Dates: start: 201409
  10. FUROSEMIDE. [Concomitant]
     Active Substance: FUROSEMIDE
     Dosage: UNK
     Dates: start: 201409
  11. CALCIUM CARBONATE. [Concomitant]
     Active Substance: CALCIUM CARBONATE
     Dosage: UNK
     Dates: start: 20151112

REACTIONS (8)
  - Liver transplant [Recovered/Resolved]
  - Hepatic cirrhosis [Unknown]
  - Headache [Unknown]
  - Hyperglycaemia [Unknown]
  - Anaemia [Unknown]
  - Myalgia [Unknown]
  - Diaphragmatic paralysis [Unknown]
  - Pleural effusion [Unknown]

NARRATIVE: CASE EVENT DATE: 20170907
